FAERS Safety Report 23444892 (Version 3)
Quarter: 2025Q4

REPORT INFORMATION
  Report Type: Report from Study
  Country: US (occurrence: US)
  Receive Date: 20240125
  Receipt Date: 20251216
  Transmission Date: 20260117
  Serious: Yes (Other)
  Sender: MERCK SHARP & DOHME LLC
  Company Number: US-009507513-2401USA014397

PATIENT
  Age: 57 Year
  Sex: Male
  Weight: 83.7 kg

DRUGS (11)
  1. KEYTRUDA [Suspect]
     Active Substance: PEMBROLIZUMAB
     Indication: Clear cell renal cell carcinoma
     Dosage: INFUSE 200MG VIA IVPB OVER 30 MIN EVERY 21 DAYS
     Route: 042
     Dates: start: 20241223, end: 20241223
  2. KEYTRUDA [Suspect]
     Active Substance: PEMBROLIZUMAB
     Indication: Clear cell renal cell carcinoma
     Dosage: DOSE DESCRIPTION : 200 MILLIGRAM, Q3W?DAILY DOSE : 9.4 MILLIGRAM?CONCENTRATION: 100 MILLIGRAM?REG...
     Route: 042
     Dates: start: 20210308, end: 20230810
  3. KEYTRUDA [Suspect]
     Active Substance: PEMBROLIZUMAB
     Indication: Clear cell renal cell carcinoma
     Dosage: DOSE DESCRIPTION : 200 MILLIGRAM, Q3W, CYCLE 14?DAILY DOSE : 9.4 MILLIGRAM?REGIMEN DOSE : 200  MI...
     Route: 042
     Dates: start: 20211209, end: 20211209
  4. KEYTRUDA [Suspect]
     Active Substance: PEMBROLIZUMAB
     Indication: Clear cell renal cell carcinoma
     Dosage: DOSE DESCRIPTION : 200 MILLIGRAM, Q3W, CYCLE 1 (CYCLE 44 OVERALL)?DAILY DOSE : 9.4 MILLIGRAM?REGI...
     Route: 042
     Dates: start: 20240118, end: 20240118
  5. KEYTRUDA [Suspect]
     Active Substance: PEMBROLIZUMAB
     Indication: Clear cell renal cell carcinoma
     Dosage: INFUSE 200MG VIA IVPB OVER 30 MIN EVERY 21 DAYS
     Route: 042
     Dates: start: 20251016, end: 20251016
  6. INLYTA [Suspect]
     Active Substance: AXITINIB
     Indication: Clear cell renal cell carcinoma
     Dosage: DOSE DESCRIPTION : 5 MILLIGRAM, BID?DAILY DOSE : 10 MILLIGRAM?CONCENTRATION: 5 MILLIGRAM?REGIMEN ...
     Route: 048
     Dates: start: 20210329, end: 20230810
  7. PROZAC [Concomitant]
     Active Substance: FLUOXETINE HYDROCHLORIDE
     Dosage: DOSE DESCRIPTION : 10 MILLIGRAM, QD?DAILY DOSE : 10 MILLIGRAM?CONCENTRATION: 10 MILLIGRAM
     Route: 048
     Dates: end: 20210405
  8. LASIX [Concomitant]
     Active Substance: FUROSEMIDE
     Dosage: DOSE DESCRIPTION : 40 MILLIGRAM, QD?DAILY DOSE : 40 MILLIGRAM?CONCENTRATION: 40 MILLIGRAM?REGIMEN...
     Route: 048
     Dates: start: 20210203, end: 20210308
  9. PRINIVIL [Concomitant]
     Active Substance: LISINOPRIL
     Dosage: DOSE DESCRIPTION : 5 MILLIGRAM, QD?DAILY DOSE : 5 MILLIGRAM?CONCENTRATION: 5 MILLIGRAM?REGIMEN DO...
     Route: 048
     Dates: start: 20210202, end: 20210308
  10. ZESTRIL [Concomitant]
     Active Substance: LISINOPRIL
     Dosage: DOSE DESCRIPTION : 5 MILLIGRAM, QD?DAILY DOSE : 5 MILLIGRAM?CONCENTRATION: 5 MILLIGRAM?REGIMEN DO...
     Route: 048
     Dates: start: 20210202, end: 20210308
  11. PRILOSEC [Concomitant]
     Active Substance: OMEPRAZOLE MAGNESIUM
     Dosage: DOSE DESCRIPTION : 20 MILLIGRAM, BID?DAILY DOSE : 40 MILLIGRAM?CONCENTRATION: 20 MILLIGRAM?REGIME...
     Route: 048
     Dates: start: 20210202, end: 20210308

REACTIONS (28)
  - Atrial flutter [Unknown]
  - Biopsy [Unknown]
  - Cardiac failure congestive [Unknown]
  - Abdominal wound dehiscence [Unknown]
  - Atrial fibrillation [Unknown]
  - Malignant neoplasm progression [Unknown]
  - Hypokalaemia [Recovered/Resolved]
  - Nodal arrhythmia [Unknown]
  - Diarrhoea [Unknown]
  - Abdominal pain [Unknown]
  - Blood chloride increased [Unknown]
  - Full blood count abnormal [Unknown]
  - Metabolic function test abnormal [Unknown]
  - Full blood count abnormal [Unknown]
  - Metabolic function test abnormal [Unknown]
  - Blood thyroid stimulating hormone abnormal [Unknown]
  - Incision site pruritus [Unknown]
  - Incision site discomfort [Unknown]
  - Wound complication [Unknown]
  - Sleep disorder [Unknown]
  - Vitreous floaters [Unknown]
  - Blood creatinine increased [Unknown]
  - Haematocrit decreased [Unknown]
  - Platelet count decreased [Unknown]
  - Blood urea increased [Unknown]
  - Blood calcium increased [Unknown]
  - Blood bilirubin increased [Unknown]
  - Product use issue [Unknown]

NARRATIVE: CASE EVENT DATE: 20210101
